FAERS Safety Report 22032794 (Version 1)
Quarter: 2023Q1

REPORT INFORMATION
  Report Type: Spontaneous
  Country: US (occurrence: None)
  Receive Date: 20230221
  Receipt Date: 20230221
  Transmission Date: 20230417
  Serious: No
  Sender: FDA-Public Use
  Company Number: None

PATIENT
  Sex: Female

DRUGS (1)
  1. TREMFYA [Suspect]
     Active Substance: GUSELKUMAB
     Indication: Psoriatic arthropathy
     Dosage: 100MG EVERY8 WEEKS SUBCUTANEOUS?
     Route: 058
     Dates: start: 20221010

REACTIONS (7)
  - Drug ineffective [None]
  - Fatigue [None]
  - Pain [None]
  - Arthralgia [None]
  - Back pain [None]
  - Arthralgia [None]
  - Movement disorder [None]
